FAERS Safety Report 9044985 (Version 1)
Quarter: 2013Q1

REPORT INFORMATION
  Report Type: Spontaneous
  Country: US (occurrence: US)
  Receive Date: 20130130
  Receipt Date: 20130130
  Transmission Date: 20140127
  Serious: No
  Sender: FDA-Public Use
  Company Number: US-ABBOTT-12P-163-0962347-00

PATIENT
  Age: 23 None
  Sex: Female
  Weight: 52.66 kg

DRUGS (5)
  1. HUMIRA 40 MG/0.8 ML PEN [Suspect]
     Indication: CROHN^S DISEASE
     Dates: start: 20120626, end: 20120626
  2. HUMIRA 40 MG/0.8 ML PEN [Suspect]
     Dates: start: 20120710, end: 20120710
  3. HUMIRA 40 MG/0.8 ML PEN [Suspect]
     Dates: start: 20120724
  4. IMURAN [Concomitant]
     Indication: CROHN^S DISEASE
  5. ORTHO TRI CYCLEN [Concomitant]
     Indication: CONTRACEPTION

REACTIONS (3)
  - Injection site pain [Not Recovered/Not Resolved]
  - Incorrect dose administered [Not Recovered/Not Resolved]
  - Device malfunction [Not Recovered/Not Resolved]
